FAERS Safety Report 5512551-7 (Version None)
Quarter: 2007Q4

REPORT INFORMATION
  Report Type: 
  Country: None (occurrence: None)
  Receive Date: 20071112
  Receipt Date: 20070912
  Transmission Date: 20080405
  Serious: No
  Sender: FDA-Public Use
  Company Number: A0681479A

PATIENT
  Age: 42 Year
  Sex: Male

DRUGS (2)
  1. AVANDAMET [Suspect]
     Indication: ACCIDENTAL EXPOSURE
     Dosage: 2TAB SINGLE DOSE
     Route: 048
     Dates: start: 20070911, end: 20070911
  2. NO CONCURRENT MEDICATION [Concomitant]

REACTIONS (5)
  - ANXIETY [None]
  - CHILLS [None]
  - HEART RATE INCREASED [None]
  - HYPERHIDROSIS [None]
  - WRONG DRUG ADMINISTERED [None]
